FAERS Safety Report 17718982 (Version 4)
Quarter: 2020Q4

REPORT INFORMATION
  Report Type: Spontaneous
  Country: US (occurrence: US)
  Receive Date: 20200428
  Receipt Date: 20201231
  Transmission Date: 20210113
  Serious: No
  Sender: FDA-Public Use
  Company Number: US-ASTRAZENECA-2020SE53654

PATIENT
  Age: 596 Month
  Sex: Female
  Weight: 72.6 kg

DRUGS (3)
  1. PULMICORT FLEXHALER [Suspect]
     Active Substance: BUDESONIDE
     Indication: ASTHMA
     Route: 055
     Dates: start: 20200317
  2. CERTRIZINE [Concomitant]
     Indication: ALLERGY TO ANIMAL
  3. FLUTICASONE. [Concomitant]
     Active Substance: FLUTICASONE
     Route: 045

REACTIONS (8)
  - Limb injury [Unknown]
  - Dysphonia [Unknown]
  - Device malfunction [Unknown]
  - Oropharyngeal pain [Unknown]
  - Inability to afford medication [Unknown]
  - Intentional device misuse [Unknown]
  - Wrong technique in device usage process [Unknown]
  - Circumstance or information capable of leading to medication error [Unknown]

NARRATIVE: CASE EVENT DATE: 202003
